FAERS Safety Report 6271363-X (Version None)
Quarter: 2009Q3

REPORT INFORMATION
  Report Type: 
  Country: None (occurrence: None)
  Receive Date: 20090715
  Receipt Date: 20090715
  Transmission Date: 20100115
  Serious: Yes (Hospitalization)
  Sender: FDA-Public Use
  Company Number: None

PATIENT
  Age: 83 Year
  Sex: Male
  Weight: 86.9 kg

DRUGS (1)
  1. SPIRONOLACTONE [Suspect]
     Indication: POLYURIA
     Dosage: 25 MG EVERY DAY PO
     Route: 048
     Dates: start: 20070419, end: 20090709

REACTIONS (1)
  - HYPERKALAEMIA [None]
